FAERS Safety Report 5764768-4 (Version None)
Quarter: 2008Q2

REPORT INFORMATION
  Report Type: 
  Country: None (occurrence: None)
  Receive Date: 20080611
  Receipt Date: 20080602
  Transmission Date: 20081010
  Serious: Yes (Other)
  Sender: FDA-Public Use
  Company Number: PHHY2008BR06757

PATIENT
  Age: 62 Year
  Sex: Female

DRUGS (5)
  1. LUDIOMIL [Suspect]
     Indication: DEPRESSION
     Dosage: 75 MG, EVERY OTHER DAY
  2. LUDIOMIL [Suspect]
     Dosage: HALF TABLET/DAY
  3. LUDIOMIL [Suspect]
     Dosage: 1 TABLET/NIGHT
  4. ALPRAZ [Concomitant]
     Indication: DEPRESSION
     Dosage: 0.5 MG, 1 TAB/NIGHT
     Route: 048
     Dates: start: 19880101
  5. CARBOLITIUM [Concomitant]
     Indication: DEPRESSION
     Dosage: 300 MG, 1 TAB MORNING + 1 IN THE NIGHT
     Dates: start: 20010101

REACTIONS (3)
  - ANOREXIA [None]
  - DEPRESSIVE SYMPTOM [None]
  - DRUG DEPENDENCE [None]
